FAERS Safety Report 4466674-4 (Version None)
Quarter: 2004Q4

REPORT INFORMATION
  Report Type: 
  Country: None (occurrence: None)
  Receive Date: 20041001
  Receipt Date: 20041001
  Transmission Date: 20050328
  Serious: Yes (Life-Threatening)
  Sender: FDA-Public Use
  Company Number: None

PATIENT
  Sex: Female
  Weight: 83.9154 kg

DRUGS (1)
  1. LISINOPRIL [Suspect]
     Indication: HYPERTENSION
     Dosage: 10 MG   1 TABLET   ORAL
     Route: 048
     Dates: start: 19980627, end: 20040622

REACTIONS (7)
  - ASTHENIA [None]
  - DYSPNOEA [None]
  - FEELING ABNORMAL [None]
  - LOCAL SWELLING [None]
  - NECK PAIN [None]
  - SWOLLEN TONGUE [None]
  - THROAT TIGHTNESS [None]
